FAERS Safety Report 7774273-1 (Version None)
Quarter: 2011Q3

REPORT INFORMATION
  Report Type: 
  Country: None (occurrence: None)
  Receive Date: 20110920
  Receipt Date: 20110913
  Transmission Date: 20111222
  Serious: Yes (Hospitalization, Other)
  Sender: FDA-Public Use
  Company Number: 2010SP055778

PATIENT
  Age: 22 Year
  Sex: Female
  Weight: 123.3784 kg

DRUGS (3)
  1. LEVOTHYROXINE [Concomitant]
  2. NUVARING [Suspect]
     Indication: CONTRACEPTION
     Dates: start: 20081021, end: 20081121
  3. ABILIFY [Concomitant]

REACTIONS (10)
  - PULMONARY EMBOLISM [None]
  - ASTHMA [None]
  - OVARIAN CYST [None]
  - PULMONARY INFARCTION [None]
  - MENTAL DISORDER [None]
  - BIPOLAR DISORDER [None]
  - VARICOSE VEIN [None]
  - COGNITIVE DISORDER [None]
  - EMOTIONAL DISORDER [None]
  - PULMONARY HYPERTENSION [None]
